FAERS Safety Report 14593400 (Version 1)
Quarter: 2018Q1

REPORT INFORMATION
  Report Type: Report from Study
  Country: FR (occurrence: FR)
  Receive Date: 20180302
  Receipt Date: 20180302
  Transmission Date: 20180509
  Serious: Yes (Other)
  Sender: FDA-Public Use
  Company Number: FR-PFIZER INC-2018084271

PATIENT
  Age: 3 Year
  Sex: Female

DRUGS (17)
  1. DEXAMETHASONE. [Suspect]
     Active Substance: DEXAMETHASONE
     Dosage: 4 MG, UNK
     Route: 048
     Dates: start: 20170903, end: 20170903
  2. DUPHALAC [Concomitant]
     Active Substance: LACTULOSE
     Indication: CONSTIPATION
  3. VINCRISTINE SULFATE. [Suspect]
     Active Substance: VINCRISTINE SULFATE
     Dosage: 0.95 MG, 1X/DAY
     Route: 042
     Dates: start: 20170830, end: 20170830
  4. VINCRISTINE SULFATE. [Suspect]
     Active Substance: VINCRISTINE SULFATE
     Dosage: 0.9 MG, 1X/DAY
     Route: 042
     Dates: start: 20170802, end: 20170802
  5. METHOTREXATE SODIUM. [Suspect]
     Active Substance: METHOTREXATE SODIUM
     Indication: ACUTE LYMPHOCYTIC LEUKAEMIA
     Dosage: 15 MG/WEEK
     Route: 048
     Dates: start: 20170810, end: 20170907
  6. METHOTREXATE SODIUM. [Suspect]
     Active Substance: METHOTREXATE SODIUM
     Dosage: 12 MG, 1X/DAY
     Route: 037
     Dates: start: 20170831, end: 20170831
  7. VINCRISTINE SULFATE. [Suspect]
     Active Substance: VINCRISTINE SULFATE
     Indication: ACUTE LYMPHOCYTIC LEUKAEMIA
     Dosage: 0.9 MG, 1X/DAY
     Route: 042
     Dates: start: 20171004, end: 20171004
  8. VINCRISTINE SULFATE. [Suspect]
     Active Substance: VINCRISTINE SULFATE
     Dosage: 0.93 MG, 1X/DAY
     Route: 042
     Dates: start: 20170906, end: 20170906
  9. METHOTREXATE SODIUM. [Suspect]
     Active Substance: METHOTREXATE SODIUM
     Indication: ACUTE LYMPHOCYTIC LEUKAEMIA
     Dosage: 12 MG, 1X/DAY
     Route: 037
     Dates: start: 20170803, end: 20170928
  10. ONCASPAR [Suspect]
     Active Substance: PEGASPARGASE
     Dosage: 1575 IU, 1X/DAY
     Route: 042
     Dates: start: 20170906, end: 20170906
  11. VINCRISTINE SULFATE. [Suspect]
     Active Substance: VINCRISTINE SULFATE
     Dosage: 0.9 MG, 1X/DAY
     Route: 042
     Dates: start: 20170809, end: 20170809
  12. 6-MERCAPTOPURINE MONOHYDRATE [Suspect]
     Active Substance: MERCAPTOPURINE
     Indication: ACUTE LYMPHOCYTIC LEUKAEMIA
     Dosage: 32 MG, 1X/DAY
     Route: 048
     Dates: start: 20170802, end: 20170919
  13. DEXAMETHASONE. [Suspect]
     Active Substance: DEXAMETHASONE
     Indication: ACUTE LYMPHOCYTIC LEUKAEMIA
     Dosage: 4 MG, 1X/DAY
     Route: 048
     Dates: start: 20170802, end: 20171001
  14. SULFAMETHOXAZOLE AND TRIMETHOPRIM [Concomitant]
     Active Substance: SULFAMETHOXAZOLE\TRIMETHOPRIM
     Indication: ANTIFUNGAL PROPHYLAXIS
  15. ONCASPAR [Suspect]
     Active Substance: PEGASPARGASE
     Indication: ACUTE LYMPHOCYTIC LEUKAEMIA
     Dosage: 1575 IU, 1X/DAY
     Route: 042
     Dates: start: 20170809, end: 20170809
  16. ONCASPAR [Suspect]
     Active Substance: PEGASPARGASE
     Dosage: 1575 IU, 1X/DAY
     Route: 042
     Dates: start: 20171004, end: 20171004
  17. 6-MERCAPTOPURINE MONOHYDRATE [Suspect]
     Active Substance: MERCAPTOPURINE
     Dosage: 32 MG, UNK
     Route: 048
     Dates: start: 20170830, end: 20170830

REACTIONS (1)
  - Hypertriglyceridaemia [Recovered/Resolved]

NARRATIVE: CASE EVENT DATE: 20170913
